FAERS Safety Report 7971995-4 (Version None)
Quarter: 2011Q4

REPORT INFORMATION
  Report Type: 
  Country: None (occurrence: None)
  Receive Date: 20111212
  Receipt Date: 20111205
  Transmission Date: 20120403
  Serious: Yes (Life-Threatening)
  Sender: FDA-Public Use
  Company Number: ES-CELGENEUS-144-50794-11120871

PATIENT
  Age: 69 Year
  Sex: Male

DRUGS (3)
  1. VIDAZA [Suspect]
     Dosage: 75 MILLIGRAM
     Route: 058
     Dates: start: 20110717, end: 20111021
  2. RBC TRANSFUSION [Concomitant]
     Route: 041
     Dates: start: 20110701, end: 20110701
  3. PLATELETS [Concomitant]
     Route: 041
     Dates: start: 20111001, end: 20111001

REACTIONS (1)
  - DISEASE PROGRESSION [None]
